FAERS Safety Report 7940427-4 (Version None)
Quarter: 2011Q4

REPORT INFORMATION
  Report Type: 
  Country: None (occurrence: None)
  Receive Date: 20111128
  Receipt Date: 20111121
  Transmission Date: 20120403
  Serious: Yes (Other)
  Sender: FDA-Public Use
  Company Number: US-BRISTOL-MYERS SQUIBB COMPANY-16189151

PATIENT
  Age: 44 Year
  Sex: Female
  Weight: 77 kg

DRUGS (1)
  1. SPRYCEL [Suspect]
     Indication: CHRONIC MYELOID LEUKAEMIA
     Dates: start: 20111013, end: 20111105

REACTIONS (12)
  - HEADACHE [None]
  - BURNING SENSATION [None]
  - OESOPHAGEAL PAIN [None]
  - MYALGIA [None]
  - EAR DISCOMFORT [None]
  - FLUID RETENTION [None]
  - PRURITUS [None]
  - VOMITING [None]
  - SWELLING FACE [None]
  - NAUSEA [None]
  - BONE PAIN [None]
  - COUGH [None]
